FAERS Safety Report 17091066 (Version 1)
Quarter: 2019Q4

REPORT INFORMATION
  Report Type: Report from Study
  Country: DE (occurrence: DE)
  Receive Date: 20191129
  Receipt Date: 20191129
  Transmission Date: 20200122
  Serious: Yes (Hospitalization)
  Sender: FDA-Public Use
  Company Number: DE-ROCHE-766477

PATIENT
  Age: 80 Year
  Sex: Male
  Weight: 54.6 kg

DRUGS (5)
  1. BEVACIZUMAB. [Suspect]
     Active Substance: BEVACIZUMAB
     Indication: COLORECTAL CANCER METASTATIC
     Dosage: FORM: INFUSION. DATE OF LAST DOSE PRIOR TO SAE: 08-MARCH 2011
     Route: 042
     Dates: start: 20110308
  2. DEXA [DEXAMETHASONE] [Concomitant]
     Route: 065
     Dates: start: 20110308, end: 20110308
  3. CAPECITABINE. [Suspect]
     Active Substance: CAPECITABINE
     Indication: COLORECTAL CANCER METASTATIC
     Dosage: DOSE: 2X2000 MG, FREQ: DAY 1 TO 14 DAILY. DATE OF LAST DOSE PRIOR TO SAE: 15 MARCH 2010
     Route: 048
     Dates: start: 20110308
  4. ZOFRAN [Concomitant]
     Active Substance: ONDANSETRON HYDROCHLORIDE
     Route: 065
     Dates: start: 20110308, end: 20110308
  5. CAPTOPRIL. [Concomitant]
     Active Substance: CAPTOPRIL

REACTIONS (2)
  - Hypertensive crisis [Recovered/Resolved]
  - Circulatory collapse [Recovered/Resolved]

NARRATIVE: CASE EVENT DATE: 20110315
